FAERS Safety Report 6108907-4 (Version None)
Quarter: 2009Q1

REPORT INFORMATION
  Report Type: 
  Country: None (occurrence: None)
  Receive Date: 20090306
  Receipt Date: 20090303
  Transmission Date: 20090719
  Serious: Yes (Hospitalization)
  Sender: FDA-Public Use
  Company Number: GXKR2009DE02546

PATIENT
  Sex: Female
  Weight: 87 kg

DRUGS (9)
  1. ASPIRIN [Suspect]
     Indication: CORONARY ARTERY DISEASE
  2. PLAVIX [Suspect]
     Indication: CORONARY ARTERY DISEASE
     Dosage: 75 MG, QD
  3. BERLINSULIN H BASAL (INSULIN INJECTION, ISOPHANE) [Concomitant]
  4. BERLINSULIN H NORMAL (INSULIN) [Concomitant]
  5. ENALAPRIL MALEATE [Concomitant]
  6. METOPROLOL TARTRATE [Concomitant]
  7. PANTOPRAZOLE SODIUM [Concomitant]
  8. PENTAERYTHIRITOL TETRANITRATE TAB [Concomitant]
  9. SIMVASTATIN [Concomitant]

REACTIONS (1)
  - ANAEMIA [None]
